FAERS Safety Report 6715630-1 (Version None)
Quarter: 2010Q2

REPORT INFORMATION
  Report Type: 
  Country: None (occurrence: None)
  Receive Date: 20100507
  Receipt Date: 20100416
  Transmission Date: 20101027
  Serious: Yes (Other)
  Sender: FDA-Public Use
  Company Number: US-ROCHE-698904

PATIENT
  Age: 70 Year
  Sex: Female

DRUGS (4)
  1. HERCEPTIN [Suspect]
     Indication: BREAST CANCER
     Dosage: IN CYCLES.
     Route: 042
     Dates: start: 20090801, end: 20091201
  2. HERCEPTIN [Suspect]
     Route: 042
     Dates: start: 20100301
  3. TAXOTERE [Concomitant]
     Indication: BREAST CANCER
     Dosage: IN CYCLES.
  4. CARBOPLATIN [Concomitant]
     Indication: BREAST CANCER
     Dosage: IN CYCLES.

REACTIONS (3)
  - ACUTE PULMONARY OEDEMA [None]
  - DIASTOLIC DYSFUNCTION [None]
  - DYSPNOEA [None]
